FAERS Safety Report 6326260-8 (Version None)
Quarter: 2009Q3

REPORT INFORMATION
  Report Type: 
  Country: None (occurrence: None)
  Receive Date: 20090820
  Receipt Date: 20090817
  Transmission Date: 20100115
  Serious: Yes (Congenital Anomaly, Other)
  Sender: FDA-Public Use
  Company Number: 1000008263

PATIENT
  Sex: Male

DRUGS (2)
  1. LEXAPRO [Suspect]
     Dosage: TRANSPLACENTAL
     Route: 064
  2. PAXIL [Suspect]
     Dosage: TRANSPLACENTAL
     Route: 064

REACTIONS (7)
  - ATRIAL SEPTAL DEFECT [None]
  - CONGENITAL ANOMALY [None]
  - CRANIOSYNOSTOSIS [None]
  - DEVELOPMENTAL DELAY [None]
  - INJURY [None]
  - MATERNAL DRUGS AFFECTING FOETUS [None]
  - TALIPES [None]
